FAERS Safety Report 10190513 (Version 1)
Quarter: 2014Q2

REPORT INFORMATION
  Report Type: Report from Study
  Country: CO (occurrence: CO)
  Receive Date: 20140522
  Receipt Date: 20140522
  Transmission Date: 20141212
  Serious: Yes (Hospitalization)
  Sender: FDA-Public Use
  Company Number: CO-ROCHE-GNE323776

PATIENT
  Age: 1 Year
  Sex: Male

DRUGS (1)
  1. DORNASE ALFA [Suspect]
     Indication: CYSTIC FIBROSIS
     Dosage: 2.5 ML, QAM
     Route: 055
     Dates: start: 20110428

REACTIONS (1)
  - Impaired gastric emptying [Recovering/Resolving]
